FAERS Safety Report 4873597-5 (Version None)
Quarter: 2005Q4

REPORT INFORMATION
  Report Type: 
  Country: None (occurrence: None)
  Receive Date: 20051201
  Receipt Date: 20050901
  Transmission Date: 20060501
  Serious: No
  Sender: FDA-Public Use
  Company Number: 2005PV001479

PATIENT
  Age: 46 Year
  Sex: Female
  Weight: 118.8424 kg

DRUGS (10)
  1. BYETTA [Suspect]
     Indication: DIABETES MELLITUS NON-INSULIN-DEPENDENT
     Dosage: 5 MCG;BID;SC
     Route: 058
     Dates: start: 20050824, end: 20050824
  2. PULMICORT [Concomitant]
  3. ALUPENT [Concomitant]
  4. MYCELEX [Concomitant]
  5. ELOCON [Concomitant]
  6. PREDNISONE [Concomitant]
  7. BENICAR [Concomitant]
  8. CLARITIN [Concomitant]
  9. ALLEGRA [Concomitant]
  10. MULTIVITAMIN [Concomitant]

REACTIONS (4)
  - ASTHMA [None]
  - BACK PAIN [None]
  - FEELING JITTERY [None]
  - HEADACHE [None]
